FAERS Safety Report 14901363 (Version 2)
Quarter: 2018Q2

REPORT INFORMATION
  Report Type: Report from Study
  Country: CO (occurrence: CO)
  Receive Date: 20180516
  Receipt Date: 20180605
  Transmission Date: 20180711
  Serious: Yes (Hospitalization)
  Sender: FDA-Public Use
  Company Number: CO-JNJFOC-20180508741

PATIENT
  Age: 75 Year
  Sex: Female
  Weight: 62 kg

DRUGS (2)
  1. DARZALEX [Suspect]
     Active Substance: DARATUMUMAB
     Indication: PLASMA CELL MYELOMA
     Route: 042
     Dates: start: 20180309
  2. DARZALEX [Suspect]
     Active Substance: DARATUMUMAB
     Indication: PLASMA CELL MYELOMA
     Route: 042
     Dates: start: 20171229, end: 20180223

REACTIONS (11)
  - Decreased appetite [Recovering/Resolving]
  - Off label use [Unknown]
  - Wound [Recovering/Resolving]
  - Pain in extremity [Recovering/Resolving]
  - Head injury [Recovering/Resolving]
  - Inappropriate schedule of drug administration [Unknown]
  - Fall [Recovering/Resolving]
  - Gastroenteritis [Recovering/Resolving]
  - Syncope [Recovering/Resolving]
  - Blood potassium decreased [Recovering/Resolving]
  - Haematoma [Recovering/Resolving]

NARRATIVE: CASE EVENT DATE: 20180309
